FAERS Safety Report 16409153 (Version 5)
Quarter: 2020Q3

REPORT INFORMATION
  Report Type: Report from Study
  Country: PE (occurrence: PE)
  Receive Date: 20190610
  Receipt Date: 20200725
  Transmission Date: 20201102
  Serious: Yes (Other)
  Sender: FDA-Public Use
  Company Number: PHHY2019PE131076

PATIENT
  Age: 69 Year
  Sex: Male
  Weight: 90 kg

DRUGS (5)
  1. TASIGNA [Suspect]
     Active Substance: NILOTINIB
     Dosage: 800 MG, QD
     Route: 048
     Dates: start: 20190228, end: 201905
  2. TASIGNA [Suspect]
     Active Substance: NILOTINIB
     Dosage: 600 MG, BID
     Route: 048
     Dates: start: 2019
  3. TASIGNA [Suspect]
     Active Substance: NILOTINIB
     Dosage: 600 MG, QD
     Route: 048
     Dates: start: 201905
  4. TASIGNA [Suspect]
     Active Substance: NILOTINIB
     Indication: CHRONIC MYELOID LEUKAEMIA
     Dosage: 800 MG, BID
     Route: 048
     Dates: start: 20190121, end: 2019
  5. ENALAPRIL [Concomitant]
     Active Substance: ENALAPRIL
     Indication: HYPERTENSION
     Dosage: 1 DF, QD
     Route: 048
     Dates: start: 2005

REACTIONS (17)
  - Urticaria [Recovered/Resolved]
  - Constipation [Recovered/Resolved]
  - Weight decreased [Recovered/Resolved]
  - Inappropriate schedule of product administration [Not Recovered/Not Resolved]
  - White blood cell count decreased [Recovered/Resolved]
  - Weight increased [Recovered/Resolved]
  - Fatigue [Recovered/Resolved]
  - Poisoning [Recovered/Resolved]
  - Drug intolerance [Recovered/Resolved]
  - Agitation [Recovered/Resolved]
  - Decreased appetite [Recovered/Resolved]
  - Drug intolerance [Unknown]
  - Skin discolouration [Recovered/Resolved]
  - Haemoglobin decreased [Recovered/Resolved]
  - Platelet count decreased [Recovered/Resolved]
  - Chills [Recovered/Resolved]
  - Pain in extremity [Recovered/Resolved]

NARRATIVE: CASE EVENT DATE: 20190228
